FAERS Safety Report 16683713 (Version 1)
Quarter: 2019Q3

REPORT INFORMATION
  Report Type: Spontaneous
  Country: US (occurrence: US)
  Receive Date: 20190624
  Receipt Date: 20190624
  Transmission Date: 20191004
  Serious: Yes (Hospitalization)
  Sender: FDA-Public Use
  Company Number: None

PATIENT
  Age: 65 Year
  Sex: Female

DRUGS (3)
  1. SANDOSTATIN LAR DEPOT [Suspect]
     Active Substance: OCTREOTIDE ACETATE
     Indication: CEREBROVASCULAR ARTERIOVENOUS MALFORMATION
     Route: 041
     Dates: start: 201704
  2. SANDOSTATIN LAR DEPOT [Suspect]
     Active Substance: OCTREOTIDE ACETATE
     Indication: RECTAL HAEMORRHAGE
     Route: 041
     Dates: start: 201704
  3. SANDOSTATIN LAR DEPOT [Suspect]
     Active Substance: OCTREOTIDE ACETATE
     Indication: OESOPHAGEAL VARICES HAEMORRHAGE
     Route: 041
     Dates: start: 201704

REACTIONS (2)
  - Gastrointestinal arteriovenous malformation [None]
  - Transfusion [None]

NARRATIVE: CASE EVENT DATE: 20190531
